FAERS Safety Report 9665880 (Version 1)
Quarter: 2013Q4

REPORT INFORMATION
  Report Type: Spontaneous
  Country: US (occurrence: None)
  Receive Date: 20131101
  Receipt Date: 20131101
  Transmission Date: 20140711
  Serious: Yes (Disabling)
  Sender: FDA-Public Use
  Company Number: None

PATIENT
  Age: 34 Year
  Sex: Female
  Weight: 94.35 kg

DRUGS (1)
  1. ALBUTEROL SULFATE 0.083 2.5 MG/ 3ML NEPHRON PHARMACEUTICALS CORPORATIO [Suspect]
     Indication: ASTHMA
     Route: 055
     Dates: start: 20130904, end: 20131031

REACTIONS (8)
  - Dry throat [None]
  - Dysphagia [None]
  - Palpitations [None]
  - Headache [None]
  - Vomiting [None]
  - Weight decreased [None]
  - Vision blurred [None]
  - Dizziness [None]
